FAERS Safety Report 8078161-5 (Version None)
Quarter: 2012Q1

REPORT INFORMATION
  Report Type: 
  Country: None (occurrence: None)
  Receive Date: 20120127
  Receipt Date: 20110311
  Transmission Date: 20120608
  Serious: No
  Sender: FDA-Public Use
  Company Number: US-BAUSCH-2011BL001662

PATIENT
  Sex: Female

DRUGS (2)
  1. CALCIUM [Concomitant]
  2. ZYLET [Suspect]
     Indication: EYE INFECTION
     Route: 047
     Dates: start: 20110217, end: 20110304

REACTIONS (4)
  - LACRIMATION INCREASED [None]
  - OCULAR HYPERAEMIA [None]
  - EYELID OEDEMA [None]
  - CONDITION AGGRAVATED [None]
